FAERS Safety Report 11238777 (Version 1)
Quarter: 2015Q3

REPORT INFORMATION
  Report Type: Spontaneous
  Country: US (occurrence: US)
  Receive Date: 20150706
  Receipt Date: 20150706
  Transmission Date: 20151125
  Serious: Yes (Hospitalization, Other)
  Sender: FDA-Public Use
  Company Number: US-PAR PHARMACEUTICAL, INC-2015SCPR014102

PATIENT

DRUGS (4)
  1. AMOXICILLIN W/CLAVULANIC ACID [Concomitant]
     Active Substance: AMOXICILLIN\CLAVULANIC ACID
     Indication: CELLULITIS
     Dosage: AMOXICILLIN 875 MG, UNK UNK, UNKNOWN
     Route: 048
  2. AMPICILLIN W/SULBACTAM             /00892601/ [Concomitant]
     Indication: CELLULITIS
     Dosage: UNK, UNKNOWN
     Route: 042
  3. VANCOMYCIN [Concomitant]
     Active Substance: VANCOMYCIN
     Indication: CELLULITIS
     Dosage: UNK, UNKNOWN
     Route: 065
  4. MINOCYCLINE HCL [Suspect]
     Active Substance: MINOCYCLINE HYDROCHLORIDE
     Indication: CELLULITIS
     Dosage: UNK UNK, UNKNOWN
     Route: 065

REACTIONS (7)
  - Sepsis [Unknown]
  - Cardiac murmur [Unknown]
  - Acute kidney injury [Unknown]
  - Streptococcal bacteraemia [None]
  - Hypotension [Unknown]
  - Pneumothorax [Unknown]
  - Eosinophilic pneumonia acute [Recovered/Resolved]
